FAERS Safety Report 6146379-4 (Version None)
Quarter: 2009Q2

REPORT INFORMATION
  Report Type: 
  Country: None (occurrence: None)
  Receive Date: 20090407
  Receipt Date: 20090330
  Transmission Date: 20091009
  Serious: Yes (Other)
  Sender: FDA-Public Use
  Company Number: PT-ABBOTT-09P-130-0562086-00

PATIENT
  Sex: Female
  Weight: 83 kg

DRUGS (2)
  1. REDUCTIL 15MG [Suspect]
     Indication: OBESITY
     Dates: start: 20080701, end: 20081001
  2. TRI-GYNERA [Concomitant]
     Indication: CONTRACEPTION
     Route: 048

REACTIONS (2)
  - BLOOD GLUCOSE INCREASED [None]
  - DIABETES MELLITUS [None]
